FAERS Safety Report 10119792 (Version 2)
Quarter: 2015Q1

REPORT INFORMATION
  Report Type: Other
  Country: US (occurrence: US)
  Receive Date: 20140426
  Receipt Date: 20150204
  Transmission Date: 20150720
  Serious: Yes (Hospitalization, Other)
  Sender: FDA-Public Use
  Company Number: US-GSKPPD-2014GSK021182

PATIENT
  Age: 57 Year
  Sex: Female

DRUGS (13)
  1. GLUCOPHAGE [Concomitant]
     Active Substance: METFORMIN HYDROCHLORIDE
  2. CALCIUM [Concomitant]
     Active Substance: CALCIUM
  3. VERAPAMIL [Concomitant]
     Active Substance: VERAPAMIL HYDROCHLORIDE
  4. LORTAB [Concomitant]
     Active Substance: ACETAMINOPHEN\HYDROCODONE BITARTRATE
  5. ASPIRIN. [Concomitant]
     Active Substance: ASPIRIN
  6. ADVIL [Concomitant]
     Active Substance: IBUPROFEN
  7. AVANDIA [Suspect]
     Active Substance: ROSIGLITAZONE MALEATE
     Indication: DIABETES MELLITUS
     Dosage: AVANDIA WAS NOT LISTED AMONG THE PATIENTS RECORDS REVIEWED.
     Route: 048
  8. LOPRESSOR [Concomitant]
     Active Substance: METOPROLOL TARTRATE
     Route: 048
  9. ENALAPRIL [Concomitant]
     Active Substance: ENALAPRIL
     Route: 048
  10. NEUROTIN [Concomitant]
  11. PROZAC [Concomitant]
     Active Substance: FLUOXETINE HYDROCHLORIDE
  12. GLUCOTROL [Concomitant]
     Active Substance: GLIPIZIDE
  13. LESCOL [Concomitant]
     Active Substance: FLUVASTATIN SODIUM

REACTIONS (1)
  - Acute myocardial infarction [Unknown]

NARRATIVE: CASE EVENT DATE: 20050827
